FAERS Safety Report 24409632 (Version 2)
Quarter: 2024Q4

REPORT INFORMATION
  Report Type: Spontaneous
  Country: US (occurrence: US)
  Receive Date: 20241008
  Receipt Date: 20241202
  Transmission Date: 20250115
  Serious: No
  Sender: AMGEN
  Company Number: US-AMGEN-USASP2024195652

PATIENT
  Age: 44 Year
  Sex: Male
  Weight: 103.4 kg

DRUGS (7)
  1. TEPEZZA [Suspect]
     Active Substance: TEPROTUMUMAB-TRBW
     Indication: Endocrine ophthalmopathy
     Dosage: 500 MILLIGRAM, Q3WK
     Route: 042
     Dates: start: 20240711
  2. TEPEZZA [Suspect]
     Active Substance: TEPROTUMUMAB-TRBW
     Indication: Toxic goitre
     Dosage: 2080 MILLIGRAM, Q3WK (FOR 2-8 DOSES)
     Route: 042
     Dates: start: 2024
  3. SODIUM CHLORIDE [Concomitant]
     Active Substance: SODIUM CHLORIDE
  4. STERILE WATER [Concomitant]
     Active Substance: WATER
  5. LEVOTHYROXINE SODIUM [Concomitant]
     Active Substance: LEVOTHYROXINE SODIUM
     Dosage: 100 MICROGRAM
     Route: 065
  6. OMEPRAZOLE [Concomitant]
     Active Substance: OMEPRAZOLE
     Dosage: 10 MILLIGRAM
     Route: 065
  7. VITAMIN D2 [Concomitant]
     Active Substance: ERGOCALCIFEROL
     Dosage: 10 MICROGRAM
     Route: 065

REACTIONS (4)
  - Therapeutic product effect incomplete [Unknown]
  - Tinnitus [Unknown]
  - Ear pain [Unknown]
  - Muscle tightness [Unknown]

NARRATIVE: CASE EVENT DATE: 20240101
